FAERS Safety Report 10341634 (Version 1)
Quarter: 2014Q3

REPORT INFORMATION
  Report Type: Spontaneous
  Country: IT (occurrence: IT)
  Receive Date: 20140725
  Receipt Date: 20140725
  Transmission Date: 20150326
  Serious: Yes (Other)
  Sender: FDA-Public Use
  Company Number: PHHY2014IT090572

PATIENT
  Age: 44 Year
  Sex: Female
  Weight: 65 kg

DRUGS (5)
  1. LUMINALE [Suspect]
     Active Substance: PHENOBARBITAL
     Indication: EPILEPSY
     Dosage: UNK UKN, UNK
  2. TOLEP [Suspect]
     Active Substance: OXCARBAZEPINE
     Indication: EPILEPSY
     Dosage: UNK UKN, UNK
  3. ESOMEPRAZOLE [Concomitant]
     Active Substance: ESOMEPRAZOLE
     Indication: GASTROOESOPHAGEAL REFLUX DISEASE
     Dosage: 1 DF, UNK
     Route: 048
  4. SYCREST [Suspect]
     Active Substance: ASENAPINE MALEATE
     Indication: MAJOR DEPRESSION
     Dosage: UNK UKN, UNK
  5. CIPRALEX [Concomitant]
     Active Substance: ESCITALOPRAM OXALATE
     Indication: DEPRESSION
     Dosage: 1 DF, UNK
     Route: 048

REACTIONS (2)
  - Tongue oedema [Recovered/Resolved]
  - Facial spasm [Recovered/Resolved]

NARRATIVE: CASE EVENT DATE: 20140709
